FAERS Safety Report 5493693-1 (Version None)
Quarter: 2007Q4

REPORT INFORMATION
  Report Type: 
  Country: None (occurrence: None)
  Receive Date: 20071023
  Receipt Date: 20071015
  Transmission Date: 20080405
  Serious: Yes (Other)
  Sender: FDA-Public Use
  Company Number: US-ASTRAZENECA-2007AC01992

PATIENT
  Age: 87 Year
  Sex: Female

DRUGS (1)
  1. IRESSA [Suspect]
     Indication: LUNG NEOPLASM MALIGNANT
     Route: 048

REACTIONS (3)
  - DERMATITIS ACNEIFORM [None]
  - EYELASH DISCOLOURATION [None]
  - GROWTH OF EYELASHES [None]
